FAERS Safety Report 16688008 (Version 2)
Quarter: 2019Q3

REPORT INFORMATION
  Report Type: Spontaneous
  Country: US (occurrence: US)
  Receive Date: 20190809
  Receipt Date: 20190919
  Transmission Date: 20191004
  Serious: Yes (Hospitalization, Other)
  Sender: FDA-Public Use
  Company Number: US-SA-2019SA218812

PATIENT
  Sex: Female

DRUGS (1)
  1. LEMTRADA [Suspect]
     Active Substance: ALEMTUZUMAB
     Dosage: UNK UNK, UNK
     Route: 041

REACTIONS (12)
  - Haemorrhage [Unknown]
  - Somnolence [Unknown]
  - Central nervous system lesion [Unknown]
  - Headache [Unknown]
  - Vasospasm [Unknown]
  - Basal ganglia haemorrhage [Unknown]
  - Facial paralysis [Unknown]
  - Vascular pseudoaneurysm [Unknown]
  - Arterial rupture [Unknown]
  - Reversible cerebral vasoconstriction syndrome [Unknown]
  - Vasculitis [Unknown]
  - Cerebral haemorrhage [Unknown]
